FAERS Safety Report 16030303 (Version 1)
Quarter: 2019Q2

REPORT INFORMATION
  Report Type: Spontaneous
  Country: US (occurrence: US)
  Receive Date: 20190304
  Receipt Date: 20190304
  Transmission Date: 20190711
  Serious: Yes (Life-Threatening, Hospitalization, Disabling, Other)
  Sender: FDA-Public Use
  Company Number: None

PATIENT
  Age: 60 Year
  Sex: Female
  Weight: 93.15 kg

DRUGS (12)
  1. BENICAR [Concomitant]
     Active Substance: OLMESARTAN MEDOXOMIL
  2. ABILIFY [Concomitant]
     Active Substance: ARIPIPRAZOLE
  3. SEROQUEL [Concomitant]
     Active Substance: QUETIAPINE FUMARATE
  4. ELIQUIS [Concomitant]
     Active Substance: APIXABAN
  5. BUPROPION. [Concomitant]
     Active Substance: BUPROPION
  6. CLONAZEPAM. [Concomitant]
     Active Substance: CLONAZEPAM
  7. VIT D [Concomitant]
     Active Substance: VITAMIN D NOS
  8. VALSARTAN. [Suspect]
     Active Substance: VALSARTAN
     Indication: HYPERTENSION
     Dosage: ?          QUANTITY:1 TABLET(S);?
     Route: 048
  9. DILTIAZEM. [Concomitant]
     Active Substance: DILTIAZEM
  10. CRESTOR [Concomitant]
     Active Substance: ROSUVASTATIN CALCIUM
  11. LAMICTAL [Concomitant]
     Active Substance: LAMOTRIGINE
  12. ALLERGAN [Concomitant]
     Active Substance: PAPAIN

REACTIONS (8)
  - Pneumonia [None]
  - Atelectasis [None]
  - Ileus [None]
  - Hyperplasia [None]
  - Post procedural complication [None]
  - Abdominal neoplasm [None]
  - Intestinal ischaemia [None]
  - Pain [None]

NARRATIVE: CASE EVENT DATE: 20180908
